FAERS Safety Report 25096410 (Version 3)
Quarter: 2025Q2

REPORT INFORMATION
  Report Type: Spontaneous
  Country: US (occurrence: US)
  Receive Date: 20250319
  Receipt Date: 20250624
  Transmission Date: 20250716
  Serious: Yes (Hospitalization)
  Sender: PFIZER
  Company Number: US-PFIZER INC-PV202500032617

PATIENT
  Age: 53 Year
  Sex: Female

DRUGS (2)
  1. IBRANCE [Suspect]
     Active Substance: PALBOCICLIB
  2. FULVESTRANT [Concomitant]
     Active Substance: FULVESTRANT

REACTIONS (5)
  - Infection [Unknown]
  - Nausea [Unknown]
  - Alopecia [Unknown]
  - Fatigue [Unknown]
  - Abdominal discomfort [Unknown]
